FAERS Safety Report 5836565-2 (Version None)
Quarter: 2008Q3

REPORT INFORMATION
  Report Type: 
  Country: None (occurrence: None)
  Receive Date: 20080801
  Receipt Date: 20080326
  Transmission Date: 20090109
  Serious: No
  Sender: FDA-Public Use
  Company Number: 2008-0543

PATIENT
  Age: 48 Year
  Sex: Female

DRUGS (20)
  1. SOMATULINE DEPOT [Suspect]
     Indication: ACROMEGALY
     Dosage: 90MG(1 IN 4WK),PARENTER
     Route: 051
     Dates: start: 20071221
  2. HYDROCORTISONE [Concomitant]
  3. FLORINEF [Concomitant]
  4. POTASSIUM CHLORIDE [Concomitant]
  5. ACEPHEX [Concomitant]
  6. ATENOLOL [Concomitant]
  7. TOPAMAX [Concomitant]
  8. IMITREX [Concomitant]
  9. CYTOMEL [Concomitant]
  10. PROVERA [Concomitant]
  11. ESTROGEL [Concomitant]
  12. EFFEXOR [Concomitant]
  13. RITALIN [Concomitant]
  14. SINGULAIR [Concomitant]
  15. ZOCOR [Concomitant]
  16. TRAZODONE HCL [Concomitant]
  17. PERCOCET [Concomitant]
  18. MIACALCIN [Concomitant]
  19. DESMOPRESSIN ACETATE [Concomitant]
  20. VITAMIN D [Concomitant]

REACTIONS (4)
  - DRUG INEFFECTIVE [None]
  - FATIGUE [None]
  - MALAISE [None]
  - MIGRAINE [None]
